FAERS Safety Report 9197103 (Version 3)
Quarter: 2013Q2

REPORT INFORMATION
  Report Type: Spontaneous
  Country: BR (occurrence: BR)
  Receive Date: 20130328
  Receipt Date: 20130614
  Transmission Date: 20140414
  Serious: Yes (Hospitalization, Other)
  Sender: FDA-Public Use
  Company Number: BR-ROCHE-1205119

PATIENT
  Age: 61 Year
  Sex: Male

DRUGS (12)
  1. MABTHERA [Suspect]
     Indication: CHRONIC LYMPHOCYTIC LEUKAEMIA
     Route: 065
     Dates: start: 20111214
  2. FLUDARABINE [Suspect]
     Indication: CHRONIC LYMPHOCYTIC LEUKAEMIA
     Route: 065
  3. CHLORAMBUCIL [Suspect]
     Indication: CHRONIC LYMPHOCYTIC LEUKAEMIA
     Route: 065
     Dates: start: 201210
  4. GLIFAGE [Concomitant]
  5. AMARYL [Concomitant]
  6. SIMVASTATIN [Concomitant]
  7. DIOVAN [Concomitant]
  8. AMLODIPINE [Concomitant]
  9. CEBRALAT [Concomitant]
  10. ATENOLOL [Concomitant]
  11. BACTRIM [Concomitant]
  12. ZYLORIC [Concomitant]

REACTIONS (8)
  - Pyrexia [Recovered/Resolved]
  - Hypotension [Recovered/Resolved]
  - Toxic epidermal necrolysis [Recovered/Resolved with Sequelae]
  - Thrombocytopenia [Recovering/Resolving]
  - Pancytopenia [Not Recovered/Not Resolved]
  - Neutropenia [Recovering/Resolving]
  - Anaemia [Recovering/Resolving]
  - Lymphocytosis [Recovering/Resolving]
